FAERS Safety Report 9454214 (Version 1)
Quarter: 2013Q3

REPORT INFORMATION
  Report Type: Spontaneous
  Country: US (occurrence: None)
  Receive Date: 20130809
  Receipt Date: 20130809
  Transmission Date: 20140515
  Serious: Yes (Hospitalization)
  Sender: FDA-Public Use
  Company Number: None

PATIENT
  Age: 19 Year
  Sex: Male
  Weight: 66.9 kg

DRUGS (1)
  1. MERCAPTOPURINE [Suspect]
     Indication: ACUTE LYMPHOCYTIC LEUKAEMIA
     Dosage: 125MG QD ORAL
     Route: 048
     Dates: start: 20130717, end: 20130725

REACTIONS (3)
  - Hepatotoxicity [None]
  - Drug level increased [None]
  - Enzyme abnormality [None]
